FAERS Safety Report 7489296-X (Version None)
Quarter: 2011Q2

REPORT INFORMATION
  Report Type: 
  Country: None (occurrence: None)
  Receive Date: 20110518
  Receipt Date: 20110507
  Transmission Date: 20111010
  Serious: Yes (Other)
  Sender: FDA-Public Use
  Company Number: BR-BAYER-2011-039898

PATIENT
  Age: 81 Year
  Sex: Female
  Weight: 44 kg

DRUGS (8)
  1. MOXIFLOXACIN [Suspect]
     Indication: SINUSITIS
     Dosage: 400 MG, TID
     Route: 048
     Dates: start: 20110505, end: 20110507
  2. MOXIFLOXACIN [Suspect]
     Indication: INFLUENZA
  3. CAPTOPRIL [Concomitant]
     Indication: HYPERTENSION
     Dosage: 25 MG, OM
     Route: 048
     Dates: start: 20080101
  4. MOXIFLOXACIN [Suspect]
     Indication: PYREXIA
  5. MOXIFLOXACIN [Suspect]
     Indication: RHINORRHOEA
  6. ATROVENT [Concomitant]
     Indication: NASAL CONGESTION
     Dosage: UNK
     Route: 045
     Dates: start: 20110507
  7. FUROSEMIDE [Concomitant]
     Indication: HYPERTENSION
     Dosage: 40 MG, OM
     Route: 048
     Dates: start: 20080101
  8. BEROTEC [Concomitant]
     Indication: NASAL CONGESTION
     Dosage: UNK
     Route: 045
     Dates: start: 20110507

REACTIONS (9)
  - VISUAL IMPAIRMENT [None]
  - PAIN IN EXTREMITY [None]
  - ASTHENIA [None]
  - GAIT DISTURBANCE [None]
  - SENSATION OF HEAVINESS [None]
  - XANTHOPSIA [None]
  - TREMOR [None]
  - MUSCULOSKELETAL STIFFNESS [None]
  - MALAISE [None]
